FAERS Safety Report 23874457 (Version 1)
Quarter: 2024Q2

REPORT INFORMATION
  Report Type: Spontaneous
  Country: TR (occurrence: TR)
  Receive Date: 20240520
  Receipt Date: 20240520
  Transmission Date: 20240716
  Serious: Yes (Other)
  Sender: FDA-Public Use
  Company Number: TR-002147023-NVSC2019TR095583

PATIENT
  Age: 68 Year
  Sex: Female

DRUGS (5)
  1. TRILEPTAL [Suspect]
     Active Substance: OXCARBAZEPINE
     Indication: Epilepsy
     Dosage: UNK, HALF TABLET IN THE MORNING AND 1 TABLET IN THE EVENING, FOR 20 YEARS
     Route: 065
  2. TRILEPTAL [Suspect]
     Active Substance: OXCARBAZEPINE
     Dosage: UNK (150 MG IN MORNING, 300 MG IN EVENING
     Route: 065
  3. TRILEPTAL [Suspect]
     Active Substance: OXCARBAZEPINE
     Dosage: UNK (FOR 7-8 YEARS, HALF TABLET IN THE MORNING AND 1 TABLET IN THE EVENING)
     Route: 065
  4. TRILEPTAL [Suspect]
     Active Substance: OXCARBAZEPINE
     Dosage: UNK (FOR 20 YEARS HALF TABLET IN THE MORNING AND 1 TABLET IN THE EVENING)
     Route: 065
  5. TEGRETOL [Suspect]
     Active Substance: CARBAMAZEPINE
     Indication: Product used for unknown indication
     Dosage: UNK
     Route: 065

REACTIONS (7)
  - Seizure [Unknown]
  - Palpitations [Recovered/Resolved]
  - Product availability issue [Unknown]
  - Wrong technique in product usage process [Unknown]
  - Dizziness [Unknown]
  - Product dose omission issue [Unknown]
  - Blood pressure increased [Unknown]
